FAERS Safety Report 5270258-8 (Version None)
Quarter: 2007Q1

REPORT INFORMATION
  Report Type: 
  Country: None (occurrence: None)
  Receive Date: 20070320
  Receipt Date: 20070312
  Transmission Date: 20070707
  Serious: Yes (Death)
  Sender: FDA-Public Use
  Company Number: CA-ELI_LILLY_AND_COMPANY-CA200703002343

PATIENT
  Age: 71 Year
  Sex: Male

DRUGS (1)
  1. XIGRIS [Suspect]
     Dosage: UNK, UNK

REACTIONS (1)
  - SEPSIS [None]
